FAERS Safety Report 23020049 (Version 1)
Quarter: 2023Q4

REPORT INFORMATION
  Report Type: Spontaneous
  Country: US (occurrence: None)
  Receive Date: 20231002
  Receipt Date: 20231002
  Transmission Date: 20240110
  Serious: Yes (Hospitalization)
  Sender: FDA-Public Use
  Company Number: None

PATIENT
  Age: 85 Year
  Sex: Male

DRUGS (1)
  1. ABIRATERONE [Suspect]
     Active Substance: ABIRATERONE
     Dosage: 500MG DAILY?

REACTIONS (7)
  - Fall [None]
  - Upper limb fracture [None]
  - Inappropriate schedule of product administration [None]
  - Dizziness [None]
  - Decreased appetite [None]
  - Nausea [None]
  - Vomiting [None]
